FAERS Safety Report 10154752 (Version 1)
Quarter: 2014Q2

REPORT INFORMATION
  Report Type: Spontaneous
  Country: US (occurrence: None)
  Receive Date: 20140505
  Receipt Date: 20140505
  Transmission Date: 20141212
  Serious: Yes (Other)
  Sender: FDA-Public Use
  Company Number: None

PATIENT
  Age: 42 Year
  Sex: Male
  Weight: 133.81 kg

DRUGS (2)
  1. PRISTIQ [Suspect]
     Indication: DEPRESSION
     Dosage: 1 TAB DOWN TO 1/3 TAB TO NONE, ONCE DAILY, TAKEN BY MOUTH
     Route: 048
  2. PRISTIQ [Suspect]
     Indication: SEASONAL AFFECTIVE DISORDER
     Dosage: 1 TAB DOWN TO 1/3 TAB TO NONE, ONCE DAILY, TAKEN BY MOUTH
     Route: 048

REACTIONS (9)
  - Influenza like illness [None]
  - Confusional state [None]
  - Irritability [None]
  - Headache [None]
  - Pyrexia [None]
  - Chills [None]
  - Hyperhidrosis [None]
  - Drug withdrawal syndrome [None]
  - Paraesthesia [None]
